FAERS Safety Report 8802995 (Version 1)
Quarter: 2012Q4

REPORT INFORMATION
  Report Type: Report from Study
  Country: JP (occurrence: JP)
  Receive Date: 20120924
  Receipt Date: 20120924
  Transmission Date: 20130627
  Serious: Yes (Hospitalization)
  Sender: FDA-Public Use
  Company Number: JP-BAYER-2012-096710

PATIENT
  Age: 41 Year
  Sex: Female

DRUGS (2)
  1. MIRENA [Suspect]
     Indication: ENDOMETRIOSIS
     Dosage: Daily dose 20 ?g
     Route: 015
     Dates: start: 20090811
  2. MIRENA [Suspect]
     Indication: UTERINE LEIOMYOMA

REACTIONS (3)
  - Metrorrhagia [Recovered/Resolved]
  - Diabetes mellitus [Unknown]
  - Abdominal pain lower [Recovering/Resolving]
